FAERS Safety Report 18327800 (Version 9)
Quarter: 2025Q3

REPORT INFORMATION
  Report Type: Report from Study
  Country: US (occurrence: US)
  Receive Date: 20200929
  Receipt Date: 20250818
  Transmission Date: 20251020
  Serious: Yes (Other)
  Sender: TAKEDA
  Company Number: US-SHIRE-US202031684

PATIENT
  Sex: Female
  Weight: 85 kg

DRUGS (45)
  1. HUMAN IMMUNOGLOBULIN G [Suspect]
     Active Substance: HUMAN IMMUNOGLOBULIN G
     Indication: Immunodeficiency common variable
     Dosage: 25 GRAM, Q2WEEKS
     Dates: start: 20171117
  2. HYQVIA [Suspect]
     Active Substance: HUMAN IMMUNOGLOBULIN G\HYALURONIDASE (HUMAN RECOMBINANT)
     Indication: Immunodeficiency common variable
     Dosage: 50 GRAM, Q4WEEKS
  3. HYQVIA [Suspect]
     Active Substance: HUMAN IMMUNOGLOBULIN G\HYALURONIDASE (HUMAN RECOMBINANT)
     Dosage: 40 GRAM, Q4WEEKS
  4. DIPHENHYDRAMINE [Concomitant]
     Active Substance: DIPHENHYDRAMINE
  5. NASACORT [Concomitant]
     Active Substance: TRIAMCINOLONE ACETONIDE
  6. LEVSIN [Concomitant]
     Active Substance: HYOSCYAMINE SULFATE
  7. EPINEPHRINE [Concomitant]
     Active Substance: EPINEPHRINE
  8. DEXILANT [Concomitant]
     Active Substance: DEXLANSOPRAZOLE
  9. SYNTHROID [Concomitant]
     Active Substance: LEVOTHYROXINE SODIUM
  10. TRAMADOL [Concomitant]
     Active Substance: TRAMADOL
  11. LOVASTATIN [Concomitant]
     Active Substance: LOVASTATIN
  12. REGLAN [Concomitant]
     Active Substance: METOCLOPRAMIDE HYDROCHLORIDE
  13. ACETAMINOPHEN [Concomitant]
     Active Substance: ACETAMINOPHEN
  14. COLESTID [Concomitant]
     Active Substance: COLESTIPOL HYDROCHLORIDE
  15. AZELASTINE [Concomitant]
     Active Substance: AZELASTINE
  16. LORATADINE [Concomitant]
     Active Substance: LORATADINE
  17. SODIUM CHLORIDE [Concomitant]
     Active Substance: SODIUM CHLORIDE
  18. CHLORTHALIDONE [Concomitant]
     Active Substance: CHLORTHALIDONE
  19. ESTRADIOL [Concomitant]
     Active Substance: ESTRADIOL
  20. COLACE [Concomitant]
     Active Substance: DOCUSATE SODIUM
  21. MAGNESIUM [Concomitant]
     Active Substance: MAGNESIUM
  22. FISH OIL [Concomitant]
     Active Substance: FISH OIL
  23. LIDOCAINE [Concomitant]
     Active Substance: LIDOCAINE
  24. FLOVENT [Concomitant]
     Active Substance: FLUTICASONE PROPIONATE
  25. POTASSIUM [Concomitant]
     Active Substance: POTASSIUM
  26. CYCLOBENZAPRINE [Concomitant]
     Active Substance: CYCLOBENZAPRINE
  27. Lmx [Concomitant]
  28. CALCIUM [Concomitant]
     Active Substance: CALCIUM
  29. COENZYME Q10 [Concomitant]
     Active Substance: DIETARY SUPPLEMENT\UBIDECARENONE
  30. VITAMIN D3 [Concomitant]
     Active Substance: CHOLECALCIFEROL
  31. VITAMIN B12 [Concomitant]
     Active Substance: CYANOCOBALAMIN
  32. PREDNISONE [Concomitant]
     Active Substance: PREDNISONE
  33. DOXYCYCLINE [Concomitant]
     Active Substance: DOXYCYCLINE
  34. SINGULAIR [Concomitant]
     Active Substance: MONTELUKAST SODIUM
  35. PULMICORT TURBUHALER [Concomitant]
     Active Substance: BUDESONIDE
  36. GLUCOSAMINE [Concomitant]
     Active Substance: GLUCOSAMINE
  37. CHONDROITIN [Concomitant]
     Active Substance: CHONDROITIN
  38. VITAMIN B [Concomitant]
     Active Substance: VITAMIN B
  39. TRAMADOL HCL [Concomitant]
     Active Substance: TRAMADOL HYDROCHLORIDE
  40. AZELASTINE HYDROCHLORIDE [Concomitant]
     Active Substance: AZELASTINE HYDROCHLORIDE
  41. FLOVENT HFA [Concomitant]
     Active Substance: FLUTICASONE PROPIONATE
  42. VITAMINS [Concomitant]
     Active Substance: VITAMINS
  43. DIPHENHYDRAMINE HYDROCHLORIDE [Concomitant]
     Active Substance: DIPHENHYDRAMINE HYDROCHLORIDE
  44. MAGNESIUM OXIDE [Concomitant]
     Active Substance: MAGNESIUM OXIDE
  45. COLESTID [Concomitant]
     Active Substance: COLESTIPOL HYDROCHLORIDE

REACTIONS (10)
  - Pneumonia [Recovering/Resolving]
  - Bronchitis [Unknown]
  - Injection site discharge [Unknown]
  - Chromaturia [Unknown]
  - COVID-19 [Unknown]
  - Dermatitis contact [Unknown]
  - Allergy to venom [Unknown]
  - Candida infection [Not Recovered/Not Resolved]
  - Rash [Unknown]
  - Pruritus [Unknown]
